FAERS Safety Report 13071718 (Version 1)
Quarter: 2016Q4

REPORT INFORMATION
  Report Type: Spontaneous
  Country: US (occurrence: US)
  Receive Date: 20161228
  Receipt Date: 20161228
  Transmission Date: 20170207
  Serious: No
  Sender: FDA-Public Use
  Company Number: None

PATIENT
  Sex: Male

DRUGS (2)
  1. SUTENT [Suspect]
     Active Substance: SUNITINIB MALATE
     Indication: RENAL CANCER
     Dosage: 25MG ONE CAPSULE DAYS 15-28 BY MOUTH
     Route: 048
     Dates: start: 20160511
  2. SUTENT [Suspect]
     Active Substance: SUNITINIB MALATE
     Indication: RENAL CANCER
     Dosage: 37.5MG 1 CAPSULE DAYS 1-14 BY MOUTH
     Route: 048
     Dates: start: 20160511

REACTIONS (2)
  - Paraesthesia [None]
  - Yellow skin [None]
